FAERS Safety Report 25068119 (Version 1)
Quarter: 2025Q1

REPORT INFORMATION
  Report Type: Spontaneous
  Country: RO (occurrence: RO)
  Receive Date: 20250312
  Receipt Date: 20250312
  Transmission Date: 20250409
  Serious: Yes (Hospitalization, Other)
  Sender: CHEPLAPHARM
  Company Number: RO-CHEPLA-2025003083

PATIENT
  Age: 26 Year
  Sex: Female

DRUGS (6)
  1. CLONAZEPAM [Suspect]
     Active Substance: CLONAZEPAM
     Indication: Depression
  2. LAMOTRIGINE [Suspect]
     Active Substance: LAMOTRIGINE
     Indication: Depression
  3. SERTRALINE [Suspect]
     Active Substance: SERTRALINE HYDROCHLORIDE
     Indication: Depression
  4. OLANZAPINE [Concomitant]
     Active Substance: OLANZAPINE
     Indication: Depression
  5. OLANZAPINE [Concomitant]
     Active Substance: OLANZAPINE
     Indication: Psychiatric care
  6. LORAZEPAM [Concomitant]
     Active Substance: LORAZEPAM
     Indication: Psychiatric care

REACTIONS (19)
  - Toxic epidermal necrolysis [Unknown]
  - Ulcer [Unknown]
  - Conjunctivitis [Unknown]
  - Vulvovaginitis [Unknown]
  - Stomatitis [Unknown]
  - Leukopenia [Recovered/Resolved]
  - Thrombocytopenia [Recovered/Resolved]
  - Anaemia [Unknown]
  - Hyperglycaemia [Unknown]
  - Hypoproteinaemia [Unknown]
  - Hypoalbuminaemia [Unknown]
  - Skin hyperpigmentation [Unknown]
  - Xeroderma [Unknown]
  - Anxiety [Unknown]
  - Visual acuity reduced [Unknown]
  - Cough [Unknown]
  - Rhinorrhoea [Unknown]
  - Malaise [Unknown]
  - Off label use [Recovered/Resolved]
